FAERS Safety Report 16609052 (Version 2)
Quarter: 2019Q4

REPORT INFORMATION
  Report Type: Report from Study
  Country: None (occurrence: CO)
  Receive Date: 20190722
  Receipt Date: 20191113
  Transmission Date: 20200122
  Serious: Yes (Hospitalization, Other)
  Sender: FDA-Public Use
  Company Number: CO-ABBVIE-19K-036-2858589-00

PATIENT
  Age: 55 Year
  Sex: Female
  Weight: 47 kg

DRUGS (2)
  1. HUMIRA [Suspect]
     Active Substance: ADALIMUMAB
     Indication: RHEUMATOID ARTHRITIS
     Route: 058
     Dates: end: 20190530
  2. HUMIRA [Suspect]
     Active Substance: ADALIMUMAB
     Indication: RHEUMATOID ARTHRITIS
     Route: 058
     Dates: start: 20100531

REACTIONS (11)
  - Pain in extremity [Not Recovered/Not Resolved]
  - Drug ineffective [Unknown]
  - Peripheral swelling [Unknown]
  - Fall [Recovering/Resolving]
  - Contusion [Recovering/Resolving]
  - Arthralgia [Recovering/Resolving]
  - Arthritis [Recovering/Resolving]
  - Hip fracture [Unknown]
  - Joint swelling [Unknown]
  - Inflammation [Unknown]
  - Rheumatoid arthritis [Recovering/Resolving]

NARRATIVE: CASE EVENT DATE: 2019
